FAERS Safety Report 23225874 (Version 1)
Quarter: 2023Q4

REPORT INFORMATION
  Report Type: Spontaneous
  Country: CN (occurrence: CN)
  Receive Date: 20231124
  Receipt Date: 20231124
  Transmission Date: 20240110
  Serious: Yes (Hospitalization, Disabling)
  Sender: FDA-Public Use
  Company Number: CN-ABBVIE-5503253

PATIENT
  Age: 36 Year
  Sex: Male
  Weight: 55 kg

DRUGS (3)
  1. VENETOCLAX [Suspect]
     Active Substance: VENETOCLAX
     Indication: Acute myelomonocytic leukaemia
     Dosage: 0.4 GRAM
     Route: 048
     Dates: start: 20231028, end: 20231107
  2. CYTARABINE [Suspect]
     Active Substance: CYTARABINE
     Indication: Acute myelomonocytic leukaemia
     Dosage: 9.6 GRAM,?INJECTION
     Route: 065
     Dates: start: 20231027, end: 20231030
  3. SODIUM CHLORIDE [Concomitant]
     Active Substance: SODIUM CHLORIDE
     Indication: Acute myelomonocytic leukaemia
     Dosage: 1000 MILLILITER,? INJECTION (0.9%)
     Dates: start: 20231027, end: 20231030

REACTIONS (3)
  - Leukopenia [Recovering/Resolving]
  - Granulocytopenia [Recovering/Resolving]
  - Thrombocytopenia [Recovering/Resolving]

NARRATIVE: CASE EVENT DATE: 20231103
